FAERS Safety Report 10036145 (Version 3)
Quarter: 2014Q2

REPORT INFORMATION
  Report Type: Spontaneous
  Country: GR (occurrence: GR)
  Receive Date: 20140325
  Receipt Date: 20140619
  Transmission Date: 20141212
  Serious: Yes (Other)
  Sender: FDA-Public Use
  Company Number: GR-ABBVIE-14P-066-1216533-00

PATIENT
  Age: 51 Year
  Sex: Male
  Weight: 76 kg

DRUGS (2)
  1. KLARICID [Suspect]
     Indication: BRONCHITIS
     Dates: start: 20140306, end: 20140311
  2. NORVASC [Concomitant]
     Indication: HYPERTENSION
     Dates: start: 2008

REACTIONS (4)
  - Hypoacusis [Recovering/Resolving]
  - Upper respiratory tract infection [Not Recovered/Not Resolved]
  - Cough [Not Recovered/Not Resolved]
  - Catarrh [Not Recovered/Not Resolved]
